FAERS Safety Report 18418908 (Version 1)
Quarter: 2020Q4

REPORT INFORMATION
  Report Type: Spontaneous
  Country: US (occurrence: US)
  Receive Date: 20201022
  Receipt Date: 20201022
  Transmission Date: 20210114
  Serious: Yes (Other)
  Sender: FDA-Public Use
  Company Number: None

PATIENT
  Age: 69 Year
  Sex: Female

DRUGS (1)
  1. LOPERAMIDE HCL 2MG CAPLETS [Suspect]
     Active Substance: LOPERAMIDE HYDROCHLORIDE
     Indication: DIARRHOEA
     Dosage: ?          QUANTITY:.5 CAPLET;?
     Route: 048

REACTIONS (4)
  - Product packaging difficult to open [None]
  - Product blister packaging issue [None]
  - Pain [None]
  - Product complaint [None]

NARRATIVE: CASE EVENT DATE: 20201022
